FAERS Safety Report 25387236 (Version 9)
Quarter: 2025Q3

REPORT INFORMATION
  Report Type: Report from Study
  Country: EU (occurrence: EU)
  Receive Date: 20250602
  Receipt Date: 20250826
  Transmission Date: 20251021
  Serious: Yes (Life-Threatening, Hospitalization)
  Sender: ABBVIE
  Company Number: EU-ABBVIE-6307355

PATIENT
  Age: 57 Year
  Sex: Male

DRUGS (3)
  1. FOSCARBIDOPA\FOSLEVODOPA [Suspect]
     Active Substance: FOSCARBIDOPA\FOSLEVODOPA
     Indication: Parkinson^s disease
     Route: 058
     Dates: start: 20250401
  2. FOSCARBIDOPA\FOSLEVODOPA [Suspect]
     Active Substance: FOSCARBIDOPA\FOSLEVODOPA
     Route: 058
  3. FOSCARBIDOPA\FOSLEVODOPA [Suspect]
     Active Substance: FOSCARBIDOPA\FOSLEVODOPA
     Route: 058

REACTIONS (3)
  - Aggression [Unknown]
  - Incorrect dose administered [Unknown]
  - Blood pressure abnormal [Not Recovered/Not Resolved]

NARRATIVE: CASE EVENT DATE: 20250101
